FAERS Safety Report 14528129 (Version 2)
Quarter: 2018Q2

REPORT INFORMATION
  Report Type: Report from Study
  Country: IN (occurrence: IN)
  Receive Date: 20180213
  Receipt Date: 20180529
  Transmission Date: 20180711
  Serious: Yes (Hospitalization)
  Sender: FDA-Public Use
  Company Number: IN-UCBSA-2018004860

PATIENT
  Age: 61 Year
  Sex: Female

DRUGS (2)
  1. EPTOIN [Concomitant]
     Active Substance: PHENYTOIN SODIUM
     Indication: PRODUCT USED FOR UNKNOWN INDICATION
     Dosage: UNK
  2. LEVETIRACETAM. [Suspect]
     Active Substance: LEVETIRACETAM
     Indication: EPILEPSY
     Dosage: 500 MG, 2X/DAY (BID)
     Route: 048
     Dates: end: 201801

REACTIONS (4)
  - Seizure [Not Recovered/Not Resolved]
  - Infection [Unknown]
  - Feeding disorder [Unknown]
  - Micturition disorder [Unknown]

NARRATIVE: CASE EVENT DATE: 201801
